FAERS Safety Report 7743099-7 (Version None)
Quarter: 2011Q3

REPORT INFORMATION
  Report Type: 
  Country: None (occurrence: None)
  Receive Date: 20110908
  Receipt Date: 20110908
  Transmission Date: 20111222
  Serious: No
  Sender: FDA-Public Use
  Company Number: None

PATIENT
  Sex: Female
  Weight: 68.0396 kg

DRUGS (2)
  1. FLAGYL [Suspect]
     Indication: POST PROCEDURAL COMPLICATION
     Dosage: 3 DAILY
     Dates: start: 20110813, end: 20110821
  2. FLAGYL [Suspect]
     Indication: GASTROINTESTINAL DISORDER
     Dosage: 3 DAILY
     Dates: start: 20110813, end: 20110821

REACTIONS (2)
  - MUSCULOSKELETAL STIFFNESS [None]
  - NECK PAIN [None]
